FAERS Safety Report 23326059 (Version 1)
Quarter: 2023Q4

REPORT INFORMATION
  Report Type: Spontaneous
  Country: US (occurrence: US)
  Receive Date: 20231221
  Receipt Date: 20231221
  Transmission Date: 20240110
  Serious: Yes (Other)
  Sender: FDA-Public Use
  Company Number: US-GILEAD-2023-0656009

PATIENT

DRUGS (1)
  1. TRUVADA [Suspect]
     Active Substance: EMTRICITABINE\TENOFOVIR DISOPROXIL FUMARATE
     Indication: Product used for unknown indication
     Dosage: UNK
     Route: 048
     Dates: start: 20080101, end: 20101031

REACTIONS (5)
  - Renal failure [Unknown]
  - Osteonecrosis [Unknown]
  - Bone density decreased [Unknown]
  - Tooth loss [Unknown]
  - Bone loss [Unknown]
